FAERS Safety Report 5112515-1 (Version None)
Quarter: 2006Q3

REPORT INFORMATION
  Report Type: 
  Country: None (occurrence: None)
  Receive Date: 20060802
  Receipt Date: 20060407
  Transmission Date: 20061208
  Serious: No
  Sender: FDA-Public Use
  Company Number: 200613433US

PATIENT
  Sex: Female

DRUGS (14)
  1. KETEK [Suspect]
     Indication: ACUTE SINUSITIS
     Dosage: 800 MG QD PO
     Route: 048
     Dates: start: 20060328, end: 20060401
  2. ISRADIPINE (DYANCIRC) [Concomitant]
  3. SYNTHROID [Concomitant]
  4. PROZAC [Concomitant]
  5. ASCORBIC ACID [Concomitant]
  6. TOCOPHERYL ACETATE [Concomitant]
  7. RETINOL [Concomitant]
  8. ZINC [Concomitant]
  9. CALCIUM [Concomitant]
  10. VITAMINS NOS [Concomitant]
  11. MINERALS NOS [Concomitant]
  12. VITAMIN B NOS (CENTRUM SILVER) [Concomitant]
  13. LORATADINE (CLARITIN) [Concomitant]
  14. NAPROXEN SODIUM (ALEVE) [Concomitant]

REACTIONS (2)
  - NODULE [None]
  - STOMATITIS [None]
